FAERS Safety Report 13100943 (Version 1)
Quarter: 2017Q1

REPORT INFORMATION
  Report Type: Spontaneous
  Country: PL (occurrence: PL)
  Receive Date: 20170110
  Receipt Date: 20170110
  Transmission Date: 20170428
  Serious: Yes (Other)
  Sender: FDA-Public Use
  Company Number: PL-TEVA-728182ACC

PATIENT
  Age: 29 Year
  Sex: Female
  Weight: 60 kg

DRUGS (3)
  1. LEVETIRACETAM TEVA [Suspect]
     Active Substance: LEVETIRACETAM
     Indication: EPILEPSY
     Route: 048
     Dates: start: 20140515
  2. LAMITRIN [Concomitant]
     Active Substance: LAMOTRIGINE
     Indication: EPILEPSY
     Route: 048
     Dates: start: 2006
  3. DEPAKINE CHRONO [Concomitant]
     Active Substance: VALPROATE SODIUM
     Indication: EPILEPSY
     Dosage: DOSE: 500; DOSE UNIT: NOT SPECIFIED
     Route: 048
     Dates: start: 2006

REACTIONS (4)
  - Myoclonus [Recovering/Resolving]
  - Increased appetite [Recovering/Resolving]
  - Deja vu [Recovering/Resolving]
  - Confusional state [Recovering/Resolving]
